FAERS Safety Report 13187066 (Version 1)
Quarter: 2017Q1

REPORT INFORMATION
  Report Type: Report from Study
  Country: EC (occurrence: EC)
  Receive Date: 20170206
  Receipt Date: 20170206
  Transmission Date: 20170428
  Serious: Yes (Death, Hospitalization)
  Sender: FDA-Public Use
  Company Number: EC-ROCHE-1793342

PATIENT
  Age: 46 Year
  Sex: Male

DRUGS (1)
  1. MABTHERA [Suspect]
     Active Substance: RITUXIMAB
     Indication: NON-HODGKIN^S LYMPHOMA
     Route: 042
     Dates: start: 20151023, end: 20160725

REACTIONS (5)
  - Gastric haemorrhage [Fatal]
  - Cardio-respiratory arrest [Fatal]
  - Influenza [Unknown]
  - Pleural effusion [Fatal]
  - Performance status decreased [Unknown]

NARRATIVE: CASE EVENT DATE: 20160710
